FAERS Safety Report 20486655 (Version 1)
Quarter: 2022Q1

REPORT INFORMATION
  Report Type: Spontaneous
  Country: US (occurrence: None)
  Receive Date: 20220217
  Receipt Date: 20220217
  Transmission Date: 20220424
  Serious: Yes (Death)
  Sender: FDA-Public Use
  Company Number: None

PATIENT
  Age: 75 Year
  Sex: Male
  Weight: 96.7 kg

DRUGS (2)
  1. ENOXAPARIN [Suspect]
     Active Substance: ENOXAPARIN
     Indication: SARS-CoV-2 test positive
     Dosage: FREQUENCY : TWICE A DAY;?
     Route: 058
     Dates: start: 20220126, end: 20220208
  2. aspirin [Concomitant]

REACTIONS (4)
  - Injection site haematoma [None]
  - Retroperitoneal haematoma [None]
  - General physical health deterioration [None]
  - Haemorrhage [None]

NARRATIVE: CASE EVENT DATE: 20220207
